FAERS Safety Report 7510964-5 (Version None)
Quarter: 2011Q2

REPORT INFORMATION
  Report Type: 
  Country: None (occurrence: None)
  Receive Date: 20110531
  Receipt Date: 20110525
  Transmission Date: 20111010
  Serious: Yes (Other)
  Sender: FDA-Public Use
  Company Number: US-PFIZER INC-2011113373

PATIENT
  Sex: Female
  Weight: 58.05 kg

DRUGS (4)
  1. METRONIDAZOLE [Concomitant]
     Indication: TRICHOMONIASIS
     Dosage: UNK
  2. ALPRAZOLAM [Concomitant]
     Dosage: UNK
  3. DEPO-PROVERA [Suspect]
     Indication: CONTRACEPTION
     Dosage: 150 MG, EVERY 3 MONTHS
     Route: 030
     Dates: start: 20080101
  4. SERTRALINE [Concomitant]
     Dosage: UNK

REACTIONS (2)
  - UNINTENDED PREGNANCY [None]
  - DRUG INEFFECTIVE [None]
